FAERS Safety Report 9368875 (Version 2)
Quarter: 2017Q4

REPORT INFORMATION
  Report Type: Report from Study
  Country: CN (occurrence: CN)
  Receive Date: 20130626
  Receipt Date: 20171216
  Transmission Date: 20180321
  Serious: Yes (Other)
  Sender: FDA-Public Use
  Company Number: CN-ROCHE-1237575

PATIENT

DRUGS (7)
  1. CAPECITABINE. [Suspect]
     Active Substance: CAPECITABINE
     Indication: COLORECTAL CANCER METASTATIC
     Dosage: 850-1000 MG/M2 TWICE DAILY FOR 14 DAYS, REPEAT EVERY 3 WEEKS.
     Route: 065
  2. 5-FU [Suspect]
     Active Substance: FLUOROURACIL
     Indication: COLORECTAL CANCER METASTATIC
     Route: 042
  3. BEVACIZUMAB. [Suspect]
     Active Substance: BEVACIZUMAB
     Route: 042
  4. OXALIPLATIN. [Suspect]
     Active Substance: OXALIPLATIN
     Indication: COLORECTAL CANCER METASTATIC
     Route: 042
  5. IRINOTECAN [Suspect]
     Active Substance: IRINOTECAN
     Indication: COLORECTAL CANCER METASTATIC
     Route: 042
  6. BEVACIZUMAB. [Suspect]
     Active Substance: BEVACIZUMAB
     Indication: COLORECTAL CANCER METASTATIC
     Route: 042
  7. LEUCOVORIN. [Suspect]
     Active Substance: LEUCOVORIN
     Indication: COLORECTAL CANCER METASTATIC
     Route: 042

REACTIONS (15)
  - Thrombocytopenia [Unknown]
  - Epistaxis [Unknown]
  - Hypertension [Unknown]
  - Thrombosis [Unknown]
  - Jaundice [Unknown]
  - Impaired healing [Unknown]
  - Hepatic function abnormal [Unknown]
  - Proteinuria [Unknown]
  - Leukopenia [Unknown]
  - Nausea [Unknown]
  - Neurotoxicity [Unknown]
  - Haemorrhage [Unknown]
  - Neutropenia [Unknown]
  - Vomiting [Unknown]
  - Diarrhoea [Unknown]
